FAERS Safety Report 4651554-1 (Version None)
Quarter: 2005Q2

REPORT INFORMATION
  Report Type: 
  Country: None (occurrence: None)
  Receive Date: 20050503
  Receipt Date: 20050228
  Transmission Date: 20051028
  Serious: Yes (Hospitalization)
  Sender: FDA-Public Use
  Company Number: US-MERCK-0502USA03650

PATIENT
  Age: 27 Year
  Sex: Male
  Weight: 161 kg

DRUGS (15)
  1. PRINIVIL [Suspect]
     Indication: HYPERTENSION
     Route: 048
     Dates: start: 20010101, end: 20030101
  2. PRINIVIL [Suspect]
     Route: 048
     Dates: start: 20030101, end: 20031001
  3. PRINIVIL [Suspect]
     Route: 048
     Dates: start: 20031001
  4. PRINIVIL [Suspect]
     Route: 048
     Dates: end: 20040907
  5. PRINIVIL [Suspect]
     Route: 048
     Dates: start: 20040907, end: 20041101
  6. PRINIVIL [Suspect]
     Indication: HEADACHE
     Route: 048
     Dates: start: 20010101, end: 20030101
  7. PRINIVIL [Suspect]
     Route: 048
     Dates: start: 20030101, end: 20031001
  8. PRINIVIL [Suspect]
     Route: 048
     Dates: start: 20031001
  9. PRINIVIL [Suspect]
     Route: 048
     Dates: end: 20040907
  10. PRINIVIL [Suspect]
     Route: 048
     Dates: start: 20040907, end: 20041101
  11. NEXIUM [Concomitant]
     Indication: GASTROOESOPHAGEAL REFLUX DISEASE
     Route: 048
     Dates: end: 20040907
  12. NEXIUM [Concomitant]
     Route: 065
     Dates: start: 20040907
  13. GLUCOPHAGE [Concomitant]
     Route: 048
  14. ZETIA [Concomitant]
     Route: 048
  15. ZOCOR [Concomitant]
     Route: 048

REACTIONS (28)
  - ABDOMINAL PAIN [None]
  - ABDOMINAL PAIN UPPER [None]
  - BLOOD CHOLESTEROL INCREASED [None]
  - BLOOD GLUCOSE FLUCTUATION [None]
  - CHEST PAIN [None]
  - CONSTIPATION [None]
  - DIABETES MELLITUS NON-INSULIN-DEPENDENT [None]
  - DIZZINESS POSTURAL [None]
  - DRUG HYPERSENSITIVITY [None]
  - DYSPNOEA [None]
  - EPIGASTRIC DISCOMFORT [None]
  - ERUCTATION [None]
  - ESSENTIAL HYPERTENSION [None]
  - FATIGUE [None]
  - FEELING ABNORMAL [None]
  - FLATULENCE [None]
  - GASTROINTESTINAL HAEMORRHAGE [None]
  - HAEMATOCHEZIA [None]
  - HEADACHE [None]
  - HYPERLIPIDAEMIA [None]
  - HYPOTENSION [None]
  - LOWER GASTROINTESTINAL HAEMORRHAGE [None]
  - PANCREATITIS ACUTE [None]
  - RENAL PAIN [None]
  - SLEEP APNOEA SYNDROME [None]
  - SNORING [None]
  - URETHRAL DISORDER [None]
  - VISION BLURRED [None]
